FAERS Safety Report 6056766-0 (Version None)
Quarter: 2009Q1

REPORT INFORMATION
  Report Type: 
  Country: None (occurrence: None)
  Receive Date: 20090126
  Receipt Date: 20090126
  Transmission Date: 20090719
  Serious: Yes (Other)
  Sender: FDA-Public Use
  Company Number: None

PATIENT
  Age: 38 Year
  Sex: Female
  Weight: 77.1115 kg

DRUGS (1)
  1. METHADONE HCL [Suspect]
     Indication: BACK PAIN
     Dosage: 65MG.  DAILY PO
     Route: 048
     Dates: start: 20040101, end: 20090123

REACTIONS (4)
  - DEPRESSION [None]
  - DRUG DEPENDENCE [None]
  - EMOTIONAL DISORDER [None]
  - MEMORY IMPAIRMENT [None]
